FAERS Safety Report 6915608-9 (Version None)
Quarter: 2010Q3

REPORT INFORMATION
  Report Type: 
  Country: None (occurrence: None)
  Receive Date: 20100804
  Receipt Date: 20100723
  Transmission Date: 20110219
  Serious: Yes (Other)
  Sender: FDA-Public Use
  Company Number: 2010AP001471

PATIENT
  Age: 20 Year
  Sex: Male

DRUGS (2)
  1. RISPERIDONE [Suspect]
     Indication: AGGRESSION
     Dosage: 0.5 MG; QD
  2. RISPERIDONE [Suspect]
     Indication: PSYCHIATRIC SYMPTOM
     Dosage: 0.5 MG; QD

REACTIONS (4)
  - DUODENITIS [None]
  - GASTROOESOPHAGEAL REFLUX DISEASE [None]
  - HYPERPROLACTINAEMIA [None]
  - OESOPHAGITIS [None]
